FAERS Safety Report 8195594-7 (Version None)
Quarter: 2012Q1

REPORT INFORMATION
  Report Type: 
  Country: None (occurrence: None)
  Receive Date: 20120308
  Receipt Date: 20120228
  Transmission Date: 20120608
  Serious: Yes (Hospitalization)
  Sender: FDA-Public Use
  Company Number: FR-ASTRAZENECA-2012SE14534

PATIENT
  Age: 582 Month
  Sex: Male

DRUGS (9)
  1. ANAFRANIL [Suspect]
     Dosage: 100 MG/ DAILY (25 MG IN THE MORNING AND 75 MG IN THE EVENING)
     Route: 048
     Dates: start: 20110402
  2. MORPHINE SULFATE [Suspect]
     Route: 048
     Dates: start: 20060701
  3. VOLTAREN [Suspect]
     Route: 048
     Dates: start: 20101101
  4. OMEPRAZOLE [Suspect]
     Route: 048
     Dates: start: 20050101
  5. CELIPROLOL [Suspect]
     Route: 048
     Dates: start: 20050101
  6. MOTILIUM [Suspect]
     Route: 048
     Dates: start: 20060701
  7. PAMIDRONATE DISODIUM [Suspect]
     Route: 042
     Dates: start: 20111017, end: 20111212
  8. ACETAMINOPHEN [Suspect]
     Route: 048
     Dates: start: 20050101
  9. MORPHINE SULFATE [Suspect]
     Route: 048
     Dates: start: 20061001

REACTIONS (1)
  - SCLERODERMA [None]
